FAERS Safety Report 25262407 (Version 1)
Quarter: 2025Q2

REPORT INFORMATION
  Report Type: Spontaneous
  Country: TW (occurrence: TW)
  Receive Date: 20250502
  Receipt Date: 20250502
  Transmission Date: 20250717
  Serious: Yes (Other)
  Sender: STRIDES
  Company Number: TW-STRIDES ARCOLAB LIMITED-2025SP005233

PATIENT
  Age: 10 Year
  Sex: Male

DRUGS (5)
  1. POTASSIUM [Suspect]
     Active Substance: POTASSIUM
     Indication: Hypokalaemia
     Route: 048
  2. POTASSIUM [Suspect]
     Active Substance: POTASSIUM
     Indication: Mineral supplementation
     Route: 048
  3. SPIRONOLACTONE [Suspect]
     Active Substance: SPIRONOLACTONE
     Indication: Hypokalaemia
     Route: 065
  4. CISPLATIN [Concomitant]
     Active Substance: CISPLATIN
     Indication: Hepatoblastoma
     Route: 042
  5. EPIRUBICIN [Concomitant]
     Active Substance: EPIRUBICIN
     Indication: Hepatoblastoma
     Route: 042

REACTIONS (1)
  - Renal impairment [Not Recovered/Not Resolved]
